FAERS Safety Report 8451333-3 (Version None)
Quarter: 2012Q2

REPORT INFORMATION
  Report Type: 
  Country: None (occurrence: None)
  Receive Date: 20120620
  Receipt Date: 20120619
  Transmission Date: 20120825
  Serious: Yes (Death, Hospitalization)
  Sender: FDA-Public Use
  Company Number: FR-ROCHE-771082

PATIENT
  Sex: Female
  Weight: 66 kg

DRUGS (9)
  1. FUROSEMIDE [Concomitant]
  2. LEXOMIL [Concomitant]
  3. METFORMIN HCL [Concomitant]
  4. ATENOLOL [Concomitant]
  5. LESCOL [Concomitant]
  6. XELODA [Suspect]
     Indication: BREAST CANCER METASTATIC
     Dosage: CYCLE 1: 2800 MG
     Route: 048
     Dates: start: 20110323, end: 20110325
  7. HYZAAR [Concomitant]
  8. VINFLUNINE [Suspect]
     Indication: BREAST CANCER METASTATIC
     Dosage: CYCLE 1: 475 MG
     Route: 042
     Dates: start: 20110323, end: 20110323
  9. DIOSMINE [Concomitant]

REACTIONS (5)
  - ABDOMINAL PAIN [None]
  - STOMATITIS [None]
  - MYALGIA [None]
  - MUCOSAL INFLAMMATION [None]
  - SEPTIC SHOCK [None]
